FAERS Safety Report 21552383 (Version 2)
Quarter: 2023Q2

REPORT INFORMATION
  Report Type: Spontaneous
  Country: BG (occurrence: BG)
  Receive Date: 20221104
  Receipt Date: 20230523
  Transmission Date: 20230722
  Serious: Yes (Other)
  Sender: FDA-Public Use
  Company Number: BG-TOLMAR, INC.-22BG037274

PATIENT
  Age: 78 Year

DRUGS (6)
  1. ELIGARD [Suspect]
     Active Substance: LEUPROLIDE ACETATE
     Indication: Prostate cancer metastatic
     Dosage: ONE COURSE
  2. ELIGARD [Suspect]
     Active Substance: LEUPROLIDE ACETATE
     Dosage: ONE COURSE
  3. ELIGARD [Suspect]
     Active Substance: LEUPROLIDE ACETATE
     Dosage: ONE COURSE
  4. ELIGARD [Suspect]
     Active Substance: LEUPROLIDE ACETATE
     Dosage: ONE COURSE
  5. XGEVA [Suspect]
     Active Substance: DENOSUMAB
     Indication: Prostate cancer metastatic
     Dosage: UNK
  6. XTANDI [Suspect]
     Active Substance: ENZALUTAMIDE
     Indication: Prostate cancer metastatic
     Dosage: UNK

REACTIONS (6)
  - Femoral neck fracture [Unknown]
  - Metastases to bone [Unknown]
  - Bone metabolism disorder [Unknown]
  - Pulmonary mass [Unknown]
  - Micturition disorder [Recovered/Resolved]
  - Soft tissue disorder [Unknown]

NARRATIVE: CASE EVENT DATE: 20221014
